FAERS Safety Report 24611794 (Version 1)
Quarter: 2024Q4

REPORT INFORMATION
  Report Type: Spontaneous
  Country: US (occurrence: US)
  Receive Date: 20241113
  Receipt Date: 20241113
  Transmission Date: 20250115
  Serious: No
  Sender: MANKIND PHARMA
  Company Number: US-MankindUS-000229

PATIENT
  Sex: Female

DRUGS (1)
  1. VARENICLINE TARTRATE [Suspect]
     Active Substance: VARENICLINE TARTRATE
     Indication: Smoking cessation therapy
     Dosage: STRENGTH: 0.5 MG AND 1 MG?STARTING MONTH PACK (FIRST 4 WEEKS) 0.5 MG AND 1 MG
     Route: 048

REACTIONS (2)
  - Depression [Recovering/Resolving]
  - Malaise [Recovering/Resolving]
